FAERS Safety Report 14498249 (Version 2)
Quarter: 2018Q1

REPORT INFORMATION
  Report Type: Spontaneous
  Country: IN (occurrence: IN)
  Receive Date: 20180207
  Receipt Date: 20180214
  Transmission Date: 20180509
  Serious: Yes (Disabling, Other)
  Sender: FDA-Public Use
  Company Number: IN-TORRENT-00001582

PATIENT
  Sex: Female

DRUGS (1)
  1. TOPIRAMATE. [Suspect]
     Active Substance: TOPIRAMATE
     Indication: MIGRAINE

REACTIONS (4)
  - Angle closure glaucoma [Recovered/Resolved]
  - Toxicity to various agents [Unknown]
  - Maculopathy [Recovered/Resolved]
  - Myopia [Recovered/Resolved]
